FAERS Safety Report 5167378-5 (Version None)
Quarter: 2006Q4

REPORT INFORMATION
  Report Type: 
  Country: None (occurrence: None)
  Receive Date: 20061130
  Receipt Date: 20061117
  Transmission Date: 20070319
  Serious: Yes (Hospitalization)
  Sender: FDA-Public Use
  Company Number: 2006PV023217

PATIENT
  Age: 65 Year
  Sex: Male
  Weight: 99.3377 kg

DRUGS (13)
  1. BYETTA [Suspect]
     Indication: DIABETES MELLITUS NON-INSULIN-DEPENDENT
     Dosage: SEE IMAGE
     Route: 058
     Dates: start: 20060501, end: 20060801
  2. BYETTA [Suspect]
     Indication: DIABETES MELLITUS NON-INSULIN-DEPENDENT
     Dosage: SEE IMAGE
     Route: 058
     Dates: start: 20060801, end: 20060901
  3. BYETTA [Suspect]
     Indication: DIABETES MELLITUS NON-INSULIN-DEPENDENT
     Dosage: SEE IMAGE
     Route: 058
     Dates: start: 20060801, end: 20060901
  4. BYETTA [Suspect]
     Indication: DIABETES MELLITUS NON-INSULIN-DEPENDENT
     Dosage: SEE IMAGE
     Route: 058
     Dates: start: 20060901
  5. CARDIZEM [Suspect]
     Indication: HYPERTENSION
  6. BETA-BLOCKER [Suspect]
     Indication: HYPERTENSION
  7. LEVIMIR [Concomitant]
  8. GLYBURIDE [Concomitant]
  9. METFORMIN HCL [Concomitant]
  10. LASIX [Concomitant]
  11. FELDODIPINE [Concomitant]
  12. NIFEDIPINE [Concomitant]
  13. ACTOS [Concomitant]

REACTIONS (9)
  - ANOREXIA [None]
  - BLOOD GLUCOSE INCREASED [None]
  - DECREASED APPETITE [None]
  - DISORIENTATION [None]
  - DIZZINESS [None]
  - FALL [None]
  - HYPERHIDROSIS [None]
  - SICK SINUS SYNDROME [None]
  - SYNCOPE [None]
